FAERS Safety Report 24541834 (Version 4)
Quarter: 2025Q1

REPORT INFORMATION
  Report Type: Spontaneous
  Country: US (occurrence: US)
  Receive Date: 20241023
  Receipt Date: 20250318
  Transmission Date: 20250409
  Serious: No
  Sender: BRISTOL-MYERS SQUIBB COMPANY
  Company Number: US-BRISTOL-MYERS SQUIBB COMPANY-2024-167094

PATIENT
  Age: 66 Year
  Sex: Female

DRUGS (3)
  1. LENALIDOMIDE [Suspect]
     Active Substance: LENALIDOMIDE
     Indication: Plasma cell myeloma
     Dosage: TAKE 1 CAPSULE BY MOUTH DAILY FOR 2 WEEKS ON FOLLOWED BY 1 WEEK OFF
     Route: 048
  2. LENALIDOMIDE [Suspect]
     Active Substance: LENALIDOMIDE
     Route: 048
  3. LENALIDOMIDE [Suspect]
     Active Substance: LENALIDOMIDE
     Dosage: TAKE 1 CAPSULE BY MOUTH DAILY FOR 2 WEEKS ON FOLLOWED BY 1 WEEK OFF
     Route: 048

REACTIONS (3)
  - Constipation [Not Recovered/Not Resolved]
  - Off label use [Unknown]
  - Diarrhoea [Recovering/Resolving]
